FAERS Safety Report 18278051 (Version 1)
Quarter: 2020Q3

REPORT INFORMATION
  Report Type: Spontaneous
  Country: FR (occurrence: FR)
  Receive Date: 20200917
  Receipt Date: 20200917
  Transmission Date: 20201103
  Serious: Yes (Hospitalization)
  Sender: FDA-Public Use
  Company Number: FR-TEVA-2020-FR-1827859

PATIENT
  Age: 52 Year
  Sex: Male
  Weight: 80 kg

DRUGS (12)
  1. COAPROVEL 300 MG/12,5 MG, COMPRIME [Concomitant]
     Active Substance: HYDROCHLOROTHIAZIDE\IRBESARTAN
  2. BEVITINE 250 MG, COMPRIME ENROBE [Concomitant]
     Active Substance: THIAMINE HYDROCHLORIDE
  3. NICOBION 500 MG, COMPRIME PELLICULE [Concomitant]
  4. DAFALGAN [Concomitant]
     Active Substance: ACETAMINOPHEN
  5. NOVORAPID [Suspect]
     Active Substance: INSULIN ASPART
     Route: 065
  6. LANSOPRAZOLE. [Suspect]
     Active Substance: LANSOPRAZOLE
     Indication: GASTRITIS
     Dosage: 30 MG
     Route: 048
     Dates: start: 20200729
  7. LEVEMIR [Suspect]
     Active Substance: INSULIN DETEMIR
     Indication: DIABETES MELLITUS
     Dosage: 18 IU
     Route: 058
     Dates: start: 20200731
  8. ADENURIC 120 MG, COMPRIM PELLICULE [Concomitant]
  9. PENTACARINAT 200 MG, POUDRE POUR USAGE PARENTERAL [Concomitant]
  10. LIPANTHYL 200 MICRONISE, GELULE [Concomitant]
     Active Substance: FENOFIBRATE
  11. BECILAN 250 MG, COMPRIME SECABLE [Concomitant]
     Active Substance: PYRIDOXINE
  12. PREDNISONE. [Concomitant]
     Active Substance: PREDNISONE

REACTIONS (1)
  - Drug eruption [Not Recovered/Not Resolved]

NARRATIVE: CASE EVENT DATE: 20200809
